FAERS Safety Report 9788277 (Version 2)
Quarter: 2014Q1

REPORT INFORMATION
  Report Type: Spontaneous
  Country: AR (occurrence: AR)
  Receive Date: 20131230
  Receipt Date: 20140317
  Transmission Date: 20141002
  Serious: Yes (Hospitalization, Other)
  Sender: FDA-Public Use
  Company Number: AR-AMGEN-ARGSP2013090783

PATIENT
  Age: 57 Year
  Sex: Male
  Weight: 92 kg

DRUGS (3)
  1. ENBREL [Suspect]
     Indication: RHEUMATOID ARTHRITIS
     Dosage: 50 MG, WEEKLY
     Route: 058
     Dates: start: 201008, end: 20130920
  2. METHOTREXATE [Concomitant]
     Dosage: UNK
     Dates: end: 201211
  3. DICLOFENAC [Concomitant]
     Dosage: UNK

REACTIONS (1)
  - Lung adenocarcinoma [Recovered/Resolved]
